FAERS Safety Report 24562617 (Version 1)
Quarter: 2024Q4

REPORT INFORMATION
  Report Type: Spontaneous
  Country: US (occurrence: US)
  Receive Date: 20241029
  Receipt Date: 20241029
  Transmission Date: 20250114
  Serious: Yes (Other)
  Sender: MERCK
  Company Number: US-009507513-2410USA011718

PATIENT
  Age: 16 Year
  Sex: Male

DRUGS (15)
  1. PRIMAXIN IV [Suspect]
     Active Substance: CILASTATIN SODIUM\IMIPENEM
     Indication: Atypical mycobacterial lower respiratory tract infection
     Dosage: UNK
     Dates: start: 201609, end: 201703
  2. PRIMAXIN IV [Suspect]
     Active Substance: CILASTATIN SODIUM\IMIPENEM
     Dosage: UNK
     Dates: start: 201801, end: 2018
  3. PRIMAXIN IV [Suspect]
     Active Substance: CILASTATIN SODIUM\IMIPENEM
     Dosage: UNK
     Dates: start: 2019, end: 2019
  4. PRIMAXIN IV [Suspect]
     Active Substance: CILASTATIN SODIUM\IMIPENEM
     Dosage: UNK
     Dates: start: 202001, end: 2020
  5. CEFTAROLINE [Suspect]
     Active Substance: CEFTAROLINE
     Indication: Atypical mycobacterial lower respiratory tract infection
     Dosage: UNK
     Dates: start: 202001, end: 2020
  6. CEFTAROLINE [Suspect]
     Active Substance: CEFTAROLINE
     Dosage: UNK
     Dates: start: 2020, end: 2020
  7. CEFTAROLINE [Suspect]
     Active Substance: CEFTAROLINE
     Dosage: UNK
     Dates: start: 2021, end: 202201
  8. AZITHROMYCIN [Concomitant]
     Active Substance: AZITHROMYCIN
     Indication: Atypical mycobacterial lower respiratory tract infection
     Dosage: UNK
     Dates: start: 201609
  9. CLOFAZIMINE [Concomitant]
     Active Substance: CLOFAZIMINE
     Indication: Atypical mycobacterial lower respiratory tract infection
     Dosage: UNK
     Dates: start: 201703
  10. BEDAQUILINE [Concomitant]
     Active Substance: BEDAQUILINE
     Indication: Atypical mycobacterial lower respiratory tract infection
     Dosage: UNK
     Dates: start: 2019
  11. TIGECYCLINE [Concomitant]
     Active Substance: TIGECYCLINE
     Indication: Atypical mycobacterial lower respiratory tract infection
     Dosage: UNK
     Dates: start: 201609, end: 201703
  12. TIGECYCLINE [Concomitant]
     Active Substance: TIGECYCLINE
     Dosage: UNK
     Dates: start: 201801, end: 2018
  13. TIGECYCLINE [Concomitant]
     Active Substance: TIGECYCLINE
     Dosage: UNK
     Dates: start: 2019, end: 202001
  14. AMIKACIN [Concomitant]
     Active Substance: AMIKACIN
     Indication: Atypical mycobacterial lower respiratory tract infection
     Dosage: UNK
     Dates: start: 201703, end: 201901
  15. AMIKACIN [Concomitant]
     Active Substance: AMIKACIN
     Dosage: UNK
     Dates: start: 2019, end: 202001

REACTIONS (2)
  - Thrombocytopenia [Unknown]
  - Product use in unapproved indication [Unknown]

NARRATIVE: CASE EVENT DATE: 20160901
